FAERS Safety Report 16172271 (Version 1)
Quarter: 2019Q2

REPORT INFORMATION
  Report Type: Spontaneous
  Country: JP (occurrence: JP)
  Receive Date: 20190409
  Receipt Date: 20190409
  Transmission Date: 20190711
  Serious: Yes (Hospitalization, Other)
  Sender: FDA-Public Use
  Company Number: JP-BRISTOL-MYERS SQUIBB COMPANY-BMS-2018-070841

PATIENT
  Age: 66 Year
  Sex: Female
  Weight: 53.5 kg

DRUGS (2)
  1. YERVOY [Suspect]
     Active Substance: IPILIMUMAB
     Indication: MALIGNANT MELANOMA
     Dosage: 150 MILLIGRAM
     Route: 041
     Dates: start: 20180822, end: 20181024
  2. OPDIVO [Suspect]
     Active Substance: NIVOLUMAB
     Indication: MALIGNANT MELANOMA
     Dosage: UNK
     Route: 041
     Dates: start: 20180404, end: 20180711

REACTIONS (4)
  - Hypothyroidism [Recovering/Resolving]
  - Hypophysitis [Recovering/Resolving]
  - Alopecia [Not Recovered/Not Resolved]
  - Adrenal insufficiency [Unknown]

NARRATIVE: CASE EVENT DATE: 201806
